FAERS Safety Report 23323610 (Version 1)
Quarter: 2023Q4

REPORT INFORMATION
  Report Type: Other
  Country: US (occurrence: None)
  Receive Date: 20231220
  Receipt Date: 20231220
  Transmission Date: 20240110
  Serious: Yes (Other)
  Sender: FDA-Public Use
  Company Number: US-ROCHE-3381192

PATIENT
  Age: 36 Year
  Sex: Male

DRUGS (1)
  1. RITUXIMAB [Suspect]
     Active Substance: RITUXIMAB
     Indication: Myelitis transverse
     Route: 065

REACTIONS (3)
  - Cytokine release syndrome [Unknown]
  - Acute respiratory distress syndrome [Unknown]
  - Cardiogenic shock [Unknown]
